FAERS Safety Report 24678561 (Version 1)
Quarter: 2024Q4

REPORT INFORMATION
  Report Type: Spontaneous
  Country: BE (occurrence: BE)
  Receive Date: 20241129
  Receipt Date: 20241129
  Transmission Date: 20250114
  Serious: Yes (Hospitalization, Other)
  Sender: ALKEM
  Company Number: BE-ALKEM LABORATORIES LIMITED-BE-ALKEM-2023-17128

PATIENT
  Age: 56 Year
  Sex: Male

DRUGS (8)
  1. ISONIAZID [Suspect]
     Active Substance: ISONIAZID
     Indication: Pulmonary tuberculosis
     Dosage: UNK
     Route: 065
  2. ISONIAZID [Suspect]
     Active Substance: ISONIAZID
     Indication: Lymph node tuberculosis
  3. ETHAMBUTOL [Suspect]
     Active Substance: ETHAMBUTOL HYDROCHLORIDE
     Indication: Pulmonary tuberculosis
     Dosage: UNK
     Route: 065
  4. ETHAMBUTOL [Suspect]
     Active Substance: ETHAMBUTOL HYDROCHLORIDE
     Indication: Lymph node tuberculosis
  5. PYRAZINAMIDE [Suspect]
     Active Substance: PYRAZINAMIDE
     Indication: Pulmonary tuberculosis
     Dosage: UNK
     Route: 065
  6. PYRAZINAMIDE [Suspect]
     Active Substance: PYRAZINAMIDE
     Indication: Lymph node tuberculosis
  7. RIFAMPIN [Suspect]
     Active Substance: RIFAMPIN
     Indication: Pulmonary tuberculosis
     Dosage: UNK
     Route: 065
  8. RIFAMPIN [Suspect]
     Active Substance: RIFAMPIN
     Indication: Lymph node tuberculosis

REACTIONS (1)
  - Drug reaction with eosinophilia and systemic symptoms [Recovered/Resolved]
